FAERS Safety Report 5521344-6 (Version None)
Quarter: 2007Q4

REPORT INFORMATION
  Report Type: 
  Country: None (occurrence: None)
  Receive Date: 20071119
  Receipt Date: 20071108
  Transmission Date: 20080405
  Serious: Yes (Hospitalization)
  Sender: FDA-Public Use
  Company Number: CA-BOEHRINGER INGELHEIM PHARMACEUTICALS, INC.-2007-CN-00785CN

PATIENT
  Sex: Female

DRUGS (2)
  1. SPIRIVA [Suspect]
  2. COMBIVENT [Suspect]

REACTIONS (1)
  - CONFUSIONAL STATE [None]
